FAERS Safety Report 24593734 (Version 1)
Quarter: 2024Q4

REPORT INFORMATION
  Report Type: Spontaneous
  Country: US (occurrence: US)
  Receive Date: 20241108
  Receipt Date: 20241108
  Transmission Date: 20250115
  Serious: Yes (Hospitalization, Other)
  Sender: PFIZER
  Company Number: US-PFIZER INC-PV202400143607

PATIENT
  Age: 36 Year
  Sex: Male

DRUGS (3)
  1. METHYLPREDNISOLONE ACETATE [Suspect]
     Active Substance: METHYLPREDNISOLONE ACETATE
     Indication: Back pain
     Dosage: UNK (HIGH DOSE) DOSE PACKS
  2. PREDNISONE [Suspect]
     Active Substance: PREDNISONE
     Indication: Back pain
     Dosage: UNK (HIGH DOSE)
  3. PREDNISONE [Suspect]
     Active Substance: PREDNISONE
     Dosage: DEPENDENCE WITH A MINIMUM OF 50 MILLIGRAMS

REACTIONS (4)
  - Incorrect dose administered [Unknown]
  - Osteoporosis [Unknown]
  - Steroid dependence [Unknown]
  - Off label use [Unknown]
